FAERS Safety Report 6011556-X (Version None)
Quarter: 2008Q4

REPORT INFORMATION
  Report Type: 
  Country: None (occurrence: None)
  Receive Date: 20081218
  Receipt Date: 20080910
  Transmission Date: 20090506
  Serious: No
  Sender: FDA-Public Use
  Company Number: US-ASTRAZENECA-2008UW18753

PATIENT
  Age: 85 Year
  Sex: Male
  Weight: 90.7 kg

DRUGS (3)
  1. CRESTOR [Suspect]
     Indication: BLOOD CHOLESTEROL
     Dosage: 10 MG
     Route: 048
     Dates: start: 20080701
  2. NEXIUM [Suspect]
     Route: 048
  3. TOPROL-XL [Concomitant]
     Route: 048

REACTIONS (3)
  - AMNESIA [None]
  - ARTHRALGIA [None]
  - CARBON DIOXIDE INCREASED [None]
